FAERS Safety Report 6998891-3 (Version None)
Quarter: 2010Q3

REPORT INFORMATION
  Report Type: 
  Country: None (occurrence: None)
  Receive Date: 20100920
  Receipt Date: 20100112
  Transmission Date: 20110219
  Serious: Yes (Other)
  Sender: FDA-Public Use
  Company Number: US-ASTRAZENECA-2010SE01381

PATIENT
  Age: 44 Year
  Sex: Female
  Weight: 124.7 kg

DRUGS (1)
  1. SEROQUEL [Suspect]
     Indication: BIPOLAR DISORDER
     Dosage: 600-1000 MG DAILY AT BEDTIME
     Route: 048
     Dates: start: 20051001

REACTIONS (4)
  - CONFUSIONAL STATE [None]
  - HYPERSOMNIA [None]
  - RENAL FAILURE [None]
  - WEIGHT INCREASED [None]
